FAERS Safety Report 19704689 (Version 1)
Quarter: 2021Q3

REPORT INFORMATION
  Report Type: Spontaneous
  Country: US (occurrence: US)
  Receive Date: 20210814
  Receipt Date: 20210814
  Transmission Date: 20211014
  Serious: No
  Sender: FDA-Public Use
  Company Number: None

PATIENT
  Sex: Female

DRUGS (12)
  1. HAIR/SKIN/NAILS SUPPLEMENT [Concomitant]
  2. TUMERIC [Concomitant]
     Active Substance: HERBALS\TURMERIC
  3. CLONAZEPAM. [Concomitant]
     Active Substance: CLONAZEPAM
  4. AMITRIPTYLINE [Concomitant]
     Active Substance: AMITRIPTYLINE
  5. OMEGA?3 ACIDS [Concomitant]
     Active Substance: OMEGA-3 FATTY ACIDS
  6. VITAMIN B?1 [Concomitant]
     Active Substance: THIAMINE HYDROCHLORIDE
  7. WOMENS 50+ MULTI VITAMIN [Concomitant]
  8. TYLENOL [Concomitant]
     Active Substance: ACETAMINOPHEN
  9. IMATINIB 400MG [Suspect]
     Active Substance: IMATINIB
     Indication: GASTRIC NEOPLASM
     Route: 048
     Dates: start: 20210715, end: 20210814
  10. LEXAPRO [Concomitant]
     Active Substance: ESCITALOPRAM OXALATE
  11. PANTOPRAZOLE [Concomitant]
     Active Substance: PANTOPRAZOLE
  12. VITAMIN D [Concomitant]
     Active Substance: VITAMIN D NOS

REACTIONS (2)
  - Therapy cessation [None]
  - Weight increased [None]
